FAERS Safety Report 7964271-7 (Version None)
Quarter: 2011Q4

REPORT INFORMATION
  Report Type: 
  Country: None (occurrence: None)
  Receive Date: 20111208
  Receipt Date: 20111205
  Transmission Date: 20120403
  Serious: Yes (Death)
  Sender: FDA-Public Use
  Company Number: US-AMGEN-USASP2011064879

PATIENT
  Sex: Male

DRUGS (2)
  1. NPLATE [Suspect]
     Indication: CHRONIC MYELOMONOCYTIC LEUKAEMIA
  2. NPLATE [Suspect]
     Indication: IDIOPATHIC THROMBOCYTOPENIC PURPURA
     Dosage: UNK
     Dates: start: 20090618

REACTIONS (1)
  - DEATH [None]
